FAERS Safety Report 17936552 (Version 1)
Quarter: 2020Q2

REPORT INFORMATION
  Report Type: Spontaneous
  Country: DE (occurrence: DE)
  Receive Date: 20200624
  Receipt Date: 20200624
  Transmission Date: 20200714
  Serious: Yes (Hospitalization)
  Sender: FDA-Public Use
  Company Number: DE-TEVA-2020-DE-1790471

PATIENT
  Age: 84 Year
  Sex: Male
  Weight: 81 kg

DRUGS (4)
  1. CLOPIDOGREL [Suspect]
     Active Substance: CLOPIDOGREL BISULFATE
     Dosage: 75 MILLIGRAM DAILY; 1-0-0-0
     Route: 048
  2. LAXOBERAL 7,5MG [Concomitant]
     Dosage: 7.5 MILLIGRAM DAILY; 1-0-0-0
     Route: 048
  3. ROSUVASTATIN. [Concomitant]
     Active Substance: ROSUVASTATIN
     Dosage: 5 MILLIGRAM DAILY; 0-0-1-0
     Route: 048
  4. ACETYLSALICYLSAURE [Suspect]
     Active Substance: ASPIRIN
     Dosage: 100 MILLIGRAM DAILY; 1-0-0-0
     Route: 048

REACTIONS (2)
  - Constipation [Unknown]
  - Haematuria [Unknown]
